FAERS Safety Report 8935367 (Version 1)
Quarter: 2012Q4

REPORT INFORMATION
  Report Type: Spontaneous
  Country: US (occurrence: None)
  Receive Date: 20121127
  Receipt Date: 20121127
  Transmission Date: 20130627
  Serious: Yes (Other)
  Sender: FDA-Public Use
  Company Number: None

PATIENT
  Age: 4 Year
  Sex: Female
  Weight: 25.9 kg

DRUGS (1)
  1. MONTELUKAST 4 MG CHEWABLE ? [Suspect]
     Indication: ASTHMA
     Dates: start: 20121015, end: 20121026

REACTIONS (2)
  - Drug ineffective [None]
  - Product substitution issue [None]
